FAERS Safety Report 6933308-6 (Version None)
Quarter: 2010Q3

REPORT INFORMATION
  Report Type: 
  Country: None (occurrence: None)
  Receive Date: 20100820
  Receipt Date: 20100803
  Transmission Date: 20110219
  Serious: Yes (Other)
  Sender: FDA-Public Use
  Company Number: US-BAYER-200943862NA

PATIENT
  Age: 26 Year
  Sex: Female
  Weight: 91 kg

DRUGS (5)
  1. YASMIN [Suspect]
     Indication: ACNE
     Dates: start: 20071001, end: 20071220
  2. HYDROCODONE BITARTRATE AND ACETAMINOPHEN [Concomitant]
     Indication: PLANTAR FASCIITIS
     Dosage: 7.5 MG/ 750 MG-
  3. IBUPROFEN [Concomitant]
     Indication: PLANTAR FASCIITIS
     Dosage: UNIT DOSE: 600 MG
  4. PREDNISONE [Concomitant]
     Indication: PLANTAR FASCIITIS
  5. SINGULAIR [Concomitant]
     Indication: ASTHMA

REACTIONS (4)
  - CHEST PAIN [None]
  - DEEP VEIN THROMBOSIS [None]
  - HYPERTENSION [None]
  - PULMONARY EMBOLISM [None]
